FAERS Safety Report 19024347 (Version 1)
Quarter: 2021Q1

REPORT INFORMATION
  Report Type: Spontaneous
  Country: DE (occurrence: DE)
  Receive Date: 20210318
  Receipt Date: 20210318
  Transmission Date: 20210420
  Serious: Yes (Other)
  Sender: FDA-Public Use
  Company Number: NVSC2021DE054539

PATIENT
  Age: 72 Year
  Sex: Male

DRUGS (1)
  1. LEVOFLOXACIN ? 1 A PHARMA 500 MG FILMTABLETTEN [Suspect]
     Active Substance: LEVOFLOXACIN
     Indication: PRODUCT USED FOR UNKNOWN INDICATION
     Dosage: UNK
     Route: 065
     Dates: start: 20201229

REACTIONS (2)
  - Liver function test increased [Not Recovered/Not Resolved]
  - Haemolysis [Not Recovered/Not Resolved]
